FAERS Safety Report 4792934-3 (Version None)
Quarter: 2005Q4

REPORT INFORMATION
  Report Type: 
  Country: None (occurrence: None)
  Receive Date: 20051010
  Receipt Date: 20041221
  Transmission Date: 20060501
  Serious: Yes (Hospitalization)
  Sender: FDA-Public Use
  Company Number: PHHO2004CA18257

PATIENT
  Age: 51 Year
  Sex: Female
  Weight: 82 kg

DRUGS (9)
  1. FERROUS GLUCONATE [Concomitant]
  2. SEPTRA [Concomitant]
  3. LOMAC [Concomitant]
  4. LIPITOR [Concomitant]
  5. NEORAL [Suspect]
     Indication: RENAL TRANSPLANT
     Dosage: 100 MG, BID
     Route: 048
  6. NEORAL [Suspect]
     Dosage: 150 MG, BID
     Route: 048
     Dates: start: 20041025
  7. PREDNISONE [Concomitant]
     Indication: RENAL TRANSPLANT
     Dosage: 17.5 MG / DAY
     Route: 048
     Dates: start: 20041126
  8. LASIX [Concomitant]
  9. FTY720 VS MYCOPHENOLATE MOFETIL [Suspect]
     Indication: RENAL TRANSPLANT
     Dosage: CODE NOT BROKEN
     Route: 048
     Dates: start: 20040916, end: 20050822

REACTIONS (11)
  - ANGIOPLASTY [None]
  - BIOPSY KIDNEY ABNORMAL [None]
  - BLOOD CREATININE INCREASED [None]
  - DIARRHOEA [None]
  - GLOMERULONEPHROPATHY [None]
  - INFLUENZA LIKE ILLNESS [None]
  - KIDNEY TRANSPLANT REJECTION [None]
  - NAUSEA [None]
  - RENAL ARTERY STENOSIS [None]
  - RENAL IMPAIRMENT [None]
  - VOMITING [None]
